FAERS Safety Report 7611984-2 (Version None)
Quarter: 2011Q3

REPORT INFORMATION
  Report Type: 
  Country: None (occurrence: None)
  Receive Date: 20110715
  Receipt Date: 20110708
  Transmission Date: 20111222
  Serious: Yes (Other)
  Sender: FDA-Public Use
  Company Number: FR-JNJFOC-20110703767

PATIENT
  Sex: Male

DRUGS (10)
  1. LASIX [Concomitant]
     Route: 048
  2. MICROLAX (SODIUM CITRATE, SODIUM LAURYL SULFOACETATE) [Concomitant]
     Route: 048
  3. ACETAMINOPHEN AND TRAMADOL HCL [Concomitant]
     Route: 048
  4. PLAVIX [Concomitant]
     Route: 048
  5. SPORANOX [Suspect]
     Indication: ASPERGILLOSIS
     Route: 048
     Dates: start: 20110501, end: 20110616
  6. POTASSIUM CHLORIDE [Concomitant]
     Route: 048
  7. ASPIRIN [Concomitant]
     Route: 048
  8. RABEPRAZOLE SODIUM [Concomitant]
     Route: 048
  9. BISOPROLOL [Concomitant]
     Route: 048
  10. ALL OTHER MEDICATION [Concomitant]
     Route: 048

REACTIONS (2)
  - CARDIOMYOPATHY [None]
  - DRUG INEFFECTIVE [None]
